FAERS Safety Report 12761504 (Version 1)
Quarter: 2016Q3

REPORT INFORMATION
  Report Type: Report from Study
  Country: MX (occurrence: MX)
  Receive Date: 20160920
  Receipt Date: 20160920
  Transmission Date: 20161109
  Serious: Yes (Hospitalization)
  Sender: FDA-Public Use
  Company Number: MX-ROCHE-1782069

PATIENT
  Age: 74 Year
  Sex: Female
  Weight: 55.5 kg

DRUGS (42)
  1. FOLINIC ACID [Suspect]
     Active Substance: LEUCOVORIN
     Indication: COLORECTAL CANCER METASTATIC
     Dosage: ON 08/JUN/2016 (START TIME 14 25): MOST RECENT DOSE OF STUDY DRUG PRIOR TO AE ONSET
     Route: 042
     Dates: start: 20160316
  2. CLOROTRIMETON [Concomitant]
     Route: 065
     Dates: start: 20160511, end: 20160511
  3. DEXAMETHASONE. [Concomitant]
     Active Substance: DEXAMETHASONE
     Route: 065
     Dates: start: 20160331, end: 20160331
  4. ONDANSETRON [Concomitant]
     Active Substance: ONDANSETRON
     Route: 065
     Dates: start: 20160608, end: 20160608
  5. APREPITANT. [Concomitant]
     Active Substance: APREPITANT
     Route: 048
     Dates: start: 20160608, end: 20160608
  6. CLOROTRIMETON [Concomitant]
     Route: 065
     Dates: start: 20160413, end: 20160413
  7. CLOROTRIMETON [Concomitant]
     Route: 065
     Dates: start: 20160525, end: 20160525
  8. CLOROTRIMETON [Concomitant]
     Route: 065
     Dates: start: 20160331, end: 20160331
  9. DEXAMETHASONE. [Concomitant]
     Active Substance: DEXAMETHASONE
     Route: 065
     Dates: start: 20160525, end: 20160525
  10. ONDANSETRON [Concomitant]
     Active Substance: ONDANSETRON
     Route: 065
     Dates: start: 20160413, end: 20160413
  11. ONDANSETRON [Concomitant]
     Active Substance: ONDANSETRON
     Route: 065
     Dates: start: 20160316, end: 20160316
  12. RANITIDINE. [Concomitant]
     Active Substance: RANITIDINE
     Route: 065
     Dates: start: 20160608, end: 20160608
  13. RANITIDINE. [Concomitant]
     Active Substance: RANITIDINE
     Route: 065
     Dates: start: 20160427, end: 20160427
  14. APREPITANT. [Concomitant]
     Active Substance: APREPITANT
     Route: 048
     Dates: start: 20160331, end: 20160331
  15. CLOROTRIMETON [Concomitant]
     Route: 065
     Dates: start: 20160316, end: 20160316
  16. CLOROTRIMETON [Concomitant]
     Route: 065
     Dates: start: 20160427, end: 20160427
  17. DEXAMETHASONE. [Concomitant]
     Active Substance: DEXAMETHASONE
     Route: 065
     Dates: start: 20160427, end: 20160427
  18. RANITIDINE. [Concomitant]
     Active Substance: RANITIDINE
     Route: 065
     Dates: start: 20160525, end: 20160525
  19. APREPITANT. [Concomitant]
     Active Substance: APREPITANT
     Route: 048
     Dates: start: 20160511, end: 20160511
  20. APREPITANT. [Concomitant]
     Active Substance: APREPITANT
     Route: 048
     Dates: start: 20160413, end: 20160413
  21. CLOROTRIMETON [Concomitant]
     Route: 065
     Dates: start: 20160608, end: 20160608
  22. ONDANSETRON [Concomitant]
     Active Substance: ONDANSETRON
     Route: 065
     Dates: start: 20160511, end: 20160511
  23. RANITIDINE. [Concomitant]
     Active Substance: RANITIDINE
     Route: 065
     Dates: start: 20160331, end: 20160331
  24. 5-FLUOROURACIL [Suspect]
     Active Substance: FLUOROURACIL
     Indication: COLORECTAL CANCER METASTATIC
     Dosage: ON 08/JUN/2016 (START TIME 14 25): MOST RECENT DOSE OF STUDY DRUG PRIOR TO AE ONSET
     Route: 042
     Dates: start: 20160316
  25. DEXAMETHASONE. [Concomitant]
     Active Substance: DEXAMETHASONE
     Route: 065
     Dates: start: 20160608, end: 20160608
  26. DEXAMETHASONE. [Concomitant]
     Active Substance: DEXAMETHASONE
     Route: 065
     Dates: start: 20160511, end: 20160511
  27. ONDANSETRON [Concomitant]
     Active Substance: ONDANSETRON
     Route: 065
     Dates: start: 20160525, end: 20160525
  28. RANITIDINE. [Concomitant]
     Active Substance: RANITIDINE
     Route: 065
     Dates: start: 20160413, end: 20160413
  29. APREPITANT. [Concomitant]
     Active Substance: APREPITANT
     Route: 048
     Dates: start: 20160316, end: 20160316
  30. DEXAMETHASONE. [Concomitant]
     Active Substance: DEXAMETHASONE
     Route: 065
     Dates: start: 20160413, end: 20160413
  31. SELOPRES ZOK [Concomitant]
     Dosage: 0.5
     Route: 065
  32. BEVACIZUMAB [Suspect]
     Active Substance: BEVACIZUMAB
     Indication: COLORECTAL CANCER METASTATIC
     Dosage: ON 08/JUN/2016 (START TIME 13 48): MOST RECENT DOSE OF STUDY DRUG PRIOR TO AE ONSET
     Route: 042
     Dates: start: 20160316
  33. DEXAMETHASONE. [Concomitant]
     Active Substance: DEXAMETHASONE
     Route: 065
     Dates: start: 20160316, end: 20160316
  34. ONDANSETRON [Concomitant]
     Active Substance: ONDANSETRON
     Route: 065
     Dates: start: 20160331, end: 20160331
  35. RANITIDINE. [Concomitant]
     Active Substance: RANITIDINE
     Route: 065
     Dates: start: 20160316, end: 20160316
  36. OXALIPLATIN. [Suspect]
     Active Substance: OXALIPLATIN
     Indication: COLORECTAL CANCER METASTATIC
     Dosage: ON 08/JUN/2016 (START TIME 14 25): MOST RECENT DOSE OF STUDY DRUG PRIOR TO AE ONSET
     Route: 042
     Dates: start: 20160316
  37. APREPITANT. [Concomitant]
     Active Substance: APREPITANT
     Route: 048
     Dates: start: 20160525, end: 20160525
  38. APREPITANT. [Concomitant]
     Active Substance: APREPITANT
     Route: 048
     Dates: start: 20160525, end: 20160525
  39. APREPITANT. [Concomitant]
     Active Substance: APREPITANT
     Route: 048
     Dates: start: 20160427, end: 20160427
  40. ONDANSETRON [Concomitant]
     Active Substance: ONDANSETRON
     Route: 065
     Dates: start: 20160427, end: 20160427
  41. RANITIDINE. [Concomitant]
     Active Substance: RANITIDINE
     Route: 065
     Dates: start: 20160511, end: 20160511
  42. RANITIDINE. [Concomitant]
     Active Substance: RANITIDINE
     Route: 065
     Dates: start: 20160511, end: 20160511

REACTIONS (2)
  - Reversible cerebral vasoconstriction syndrome [Recovered/Resolved]
  - Hypertension [Recovered/Resolved]

NARRATIVE: CASE EVENT DATE: 20160621
